FAERS Safety Report 21625513 (Version 1)
Quarter: 2022Q4

REPORT INFORMATION
  Report Type: Report from Study
  Country: US (occurrence: US)
  Receive Date: 20221122
  Receipt Date: 20221122
  Transmission Date: 20230113
  Serious: No
  Sender: FDA-Public Use
  Company Number: US-ABBVIE-4207875

PATIENT
  Sex: Male

DRUGS (9)
  1. VENCLEXTA [Suspect]
     Active Substance: VENETOCLAX
     Indication: Chronic lymphocytic leukaemia
     Route: 048
  2. Omeprazole Oral Capsule Delayed Rel [Concomitant]
     Indication: Product used for unknown indication
  3. Allopurinol Oral Tablet 100 MG [Concomitant]
     Indication: Product used for unknown indication
  4. Bactrim Oral Tablet 400-80 MG [Concomitant]
     Indication: Product used for unknown indication
  5. EQ Famotidine Max St Oral Tablet 20 [Concomitant]
     Indication: Product used for unknown indication
  6. Ibuprofen Oral Capsule 200 MG [Concomitant]
     Indication: Product used for unknown indication
  7. Magnesium Oral Tablet 250 MG [Concomitant]
     Indication: Product used for unknown indication
  8. valACYclovir HCl Oral Tablet 1 GM [Concomitant]
     Indication: Product used for unknown indication
  9. Calcium Carbonate Oral Tablet Chewa [Concomitant]
     Indication: Product used for unknown indication

REACTIONS (2)
  - Dyspepsia [Not Recovered/Not Resolved]
  - Abdominal pain upper [Not Recovered/Not Resolved]
